FAERS Safety Report 21005657 (Version 8)
Quarter: 2022Q3

REPORT INFORMATION
  Report Type: Report from Study
  Country: CN (occurrence: CN)
  Receive Date: 20220624
  Receipt Date: 20220824
  Transmission Date: 20221027
  Serious: Yes (Life-Threatening, Hospitalization)
  Sender: FDA-Public Use
  Company Number: CN-Merck Healthcare KGaA-9331193

PATIENT
  Age: 43 Year
  Sex: Female
  Weight: 55 kg

DRUGS (8)
  1. CETUXIMAB [Suspect]
     Active Substance: CETUXIMAB
     Indication: Colorectal cancer metastatic
     Dosage: 636 MG, DAILY
     Route: 042
     Dates: start: 20220531
  2. CETUXIMAB [Suspect]
     Active Substance: CETUXIMAB
     Dosage: 398 MG, DAILY
     Route: 042
     Dates: start: 20220608, end: 20220608
  3. OXALIPLATIN [Concomitant]
     Active Substance: OXALIPLATIN
     Indication: Colorectal cancer metastatic
     Dosage: 135 MG, DAILY
     Route: 042
     Dates: start: 20220531, end: 20220531
  4. LEUCOVORIN CALCIUM [Concomitant]
     Active Substance: LEUCOVORIN CALCIUM
     Indication: Colorectal cancer metastatic
     Dosage: UNK, UNKNOWN
     Route: 042
     Dates: start: 20220531, end: 20220531
  5. FLUOROURACIL [Concomitant]
     Active Substance: FLUOROURACIL
     Indication: Colorectal cancer metastatic
     Dosage: 4452 MG, DAILY
     Route: 042
     Dates: start: 20220531, end: 20220531
  6. POTASSIUM CHLORIDE PROAMP [Concomitant]
     Indication: Product used for unknown indication
     Dosage: 15 ML, DAILY
     Route: 041
     Dates: start: 20220627
  7. POTASSIUM CHLORIDE PROAMP [Concomitant]
     Dosage: 15 ML, DAILY
     Route: 041
     Dates: start: 20220628
  8. POTASSIUM CHLORIDE PROAMP [Concomitant]
     Dosage: 15 ML, DAILY
     Route: 041
     Dates: start: 20220706

REACTIONS (5)
  - Febrile neutropenia [Recovered/Resolved]
  - Platelet count decreased [Recovered/Resolved]
  - White blood cell count decreased [Recovered/Resolved]
  - Diarrhoea [Recovered/Resolved]
  - Fungaemia [Recovered/Resolved]

NARRATIVE: CASE EVENT DATE: 20220608
